FAERS Safety Report 4486340-9 (Version None)
Quarter: 2004Q4

REPORT INFORMATION
  Report Type: 
  Country: None (occurrence: None)
  Receive Date: 20041022
  Receipt Date: 20041008
  Transmission Date: 20050328
  Serious: Yes (Hospitalization, Other)
  Sender: FDA-Public Use
  Company Number: 2004S1003025

PATIENT
  Age: 45 Year
  Sex: Female

DRUGS (5)
  1. LEVOTHYROXINE SODIUM TABLETS 75 MCG MYLAN [Suspect]
     Indication: HYPOTHYROIDISM
     Dosage: 75MCG QD ORAL
     Route: 048
  2. METOPROLOL SUCCINATE [Concomitant]
  3. ATORVASTATIN CALCIUM [Concomitant]
  4. CONJUGATED ESTROGENS [Concomitant]
  5. HYDROCHLOROTHIAZIDE [Concomitant]

REACTIONS (1)
  - MYOCARDIAL INFARCTION [None]
